FAERS Safety Report 5754559-2 (Version None)
Quarter: 2008Q2

REPORT INFORMATION
  Report Type: 
  Country: None (occurrence: None)
  Receive Date: 20080530
  Receipt Date: 20080519
  Transmission Date: 20081010
  Serious: Yes (Other)
  Sender: FDA-Public Use
  Company Number: JP-PFIZER INC-2008043339

PATIENT
  Age: 74 Year
  Sex: Female

DRUGS (5)
  1. CELECOX [Suspect]
     Indication: OSTEOARTHRITIS
     Route: 048
     Dates: start: 20080513, end: 20080513
  2. CYTOTEC [Suspect]
     Route: 048
     Dates: start: 20080513, end: 20080513
  3. MOBIC [Concomitant]
     Route: 048
  4. MUCOSTA [Concomitant]
     Route: 048
  5. KETOPROFEN [Concomitant]
     Route: 062

REACTIONS (1)
  - ANAPHYLACTIC SHOCK [None]
